FAERS Safety Report 10141656 (Version 2)
Quarter: 2014Q2

REPORT INFORMATION
  Report Type: Spontaneous
  Country: CR (occurrence: CR)
  Receive Date: 20140429
  Receipt Date: 20140516
  Transmission Date: 20141212
  Serious: No
  Sender: FDA-Public Use
  Company Number: CR-PFIZER INC-2014116436

PATIENT
  Sex: Male

DRUGS (2)
  1. PRISTIQ [Suspect]
     Indication: DEPRESSION
     Dosage: 50 MG, 1X/DAY
     Route: 048
     Dates: start: 201311, end: 201403
  2. CETIRIZINE [Concomitant]
     Dosage: UNK, 1X/DAY
     Dates: start: 2013

REACTIONS (2)
  - Vasculitis [Recovered/Resolved]
  - Rash [Recovered/Resolved]
